FAERS Safety Report 17800068 (Version 1)
Quarter: 2020Q2

REPORT INFORMATION
  Report Type: Spontaneous
  Country: KZ (occurrence: KZ)
  Receive Date: 20200518
  Receipt Date: 20200518
  Transmission Date: 20200714
  Serious: Yes (Other)
  Sender: FDA-Public Use
  Company Number: KZ-BAUSCH-BL-2020-014412

PATIENT
  Age: 36 Year
  Sex: Male

DRUGS (2)
  1. ALFA NORMIX [Suspect]
     Active Substance: RIFAXIMIN
     Indication: DIARRHOEA
     Route: 048
  2. ALFA NORMIX [Suspect]
     Active Substance: RIFAXIMIN
     Indication: INTENTIONAL PRODUCT USE ISSUE

REACTIONS (2)
  - Intentional product use issue [Recovered/Resolved]
  - Haematochezia [Unknown]

NARRATIVE: CASE EVENT DATE: 2020
